FAERS Safety Report 15210148 (Version 1)
Quarter: 2018Q3

REPORT INFORMATION
  Report Type: Spontaneous
  Country: US (occurrence: US)
  Receive Date: 20180629
  Receipt Date: 20180629
  Transmission Date: 20181010
  Serious: Yes (Hospitalization)
  Sender: FDA-Public Use
  Company Number: None

PATIENT
  Age: 63 Year
  Sex: Female
  Weight: 109.32 kg

DRUGS (1)
  1. NEXAVAR [Suspect]
     Active Substance: SORAFENIB
     Indication: HEPATOCELLULAR CARCINOMA
     Route: 048
     Dates: start: 20180421, end: 20180506

REACTIONS (15)
  - Heart rate increased [None]
  - Portal vein thrombosis [None]
  - Oliguria [None]
  - Ammonia increased [None]
  - Mental status changes [None]
  - Fall [None]
  - Pruritus [None]
  - Tachycardia [None]
  - Wheezing [None]
  - Respiratory rate increased [None]
  - Urinary tract infection [None]
  - Rash generalised [None]
  - Circadian rhythm sleep disorder [None]
  - Hepatocellular carcinoma [None]
  - Hyperbilirubinaemia [None]

NARRATIVE: CASE EVENT DATE: 20180506
